FAERS Safety Report 9414433 (Version 1)
Quarter: 2013Q3

REPORT INFORMATION
  Report Type: Spontaneous
  Country: US (occurrence: US)
  Receive Date: 20130723
  Receipt Date: 20130723
  Transmission Date: 20140515
  Serious: Yes (Other)
  Sender: FDA-Public Use
  Company Number: US-TEVA-374771USA

PATIENT
  Sex: Female
  Weight: 106.69 kg

DRUGS (5)
  1. GABITRIL [Suspect]
     Indication: EPILEPSY
     Route: 048
     Dates: start: 19921230
  2. SYNTHROID [Concomitant]
     Indication: HYPOTHYROIDISM
     Dosage: 112 MICROGRAM DAILY;
     Route: 048
     Dates: start: 1982
  3. TOPAMAX [Concomitant]
     Indication: EPILEPSY
     Dosage: 100 MILLIGRAM DAILY;
     Route: 048
  4. SINGULAIR [Concomitant]
     Indication: HYPERSENSITIVITY
     Dosage: 10 MILLIGRAM DAILY;
     Route: 048
  5. SINGULAIR [Concomitant]
     Indication: ASTHMA

REACTIONS (5)
  - Toxicity to various agents [Recovered/Resolved]
  - Grand mal convulsion [Recovered/Resolved]
  - Seizure like phenomena [Recovered/Resolved]
  - Cerebral atrophy [Unknown]
  - Drug ineffective [Unknown]
